FAERS Safety Report 16978871 (Version 1)
Quarter: 2019Q4

REPORT INFORMATION
  Report Type: Spontaneous
  Country: US (occurrence: US)
  Receive Date: 20191029
  Receipt Date: 20191029
  Transmission Date: 20200122
  Serious: Yes (Other)
  Sender: FDA-Public Use
  Company Number: None

PATIENT
  Age: 39 Year
  Sex: Female
  Weight: 87.75 kg

DRUGS (8)
  1. SYNTHROID [Concomitant]
     Active Substance: LEVOTHYROXINE SODIUM
  2. ALIGN [Concomitant]
     Active Substance: BIFIDOBACTERIUM LONGUM SUBSP. INFANTIS
  3. OTEZLA [Suspect]
     Active Substance: APREMILAST
     Indication: PSORIATIC ARTHROPATHY
     Dosage: ?          QUANTITY:56 TABLET(S);?
     Route: 048
     Dates: start: 20190928, end: 20191026
  4. LEXAPRO [Concomitant]
     Active Substance: ESCITALOPRAM OXALATE
  5. TAKHZYRO [Concomitant]
     Active Substance: LANADELUMAB-FLYO
  6. VYVANSE [Concomitant]
     Active Substance: LISDEXAMFETAMINE DIMESYLATE
  7. RUCONEST [Concomitant]
     Active Substance: HUMAN C1-ESTERASE INHIBITOR
  8. BARIATRIC VITAMIN [Concomitant]

REACTIONS (7)
  - Arthralgia [None]
  - Mood altered [None]
  - Depression [None]
  - Frustration tolerance decreased [None]
  - Fatigue [None]
  - Vomiting [None]
  - Middle insomnia [None]

NARRATIVE: CASE EVENT DATE: 20191025
